FAERS Safety Report 18563973 (Version 1)
Quarter: 2020Q4

REPORT INFORMATION
  Report Type: Other
  Country: US (occurrence: US)
  Receive Date: 20201201
  Receipt Date: 20201201
  Transmission Date: 20210114
  Serious: Yes (Other)
  Sender: FDA-Public Use
  Company Number: US-ROCHE-2723287

PATIENT

DRUGS (1)
  1. CAPECITABINE. [Suspect]
     Active Substance: CAPECITABINE
     Indication: OESOPHAGEAL CARCINOMA
     Route: 065

REACTIONS (14)
  - Pneumonia [Unknown]
  - Tracheo-oesophageal fistula [Unknown]
  - Oesophageal stenosis [Unknown]
  - Oesophagitis [Unknown]
  - Anastomotic stenosis [Unknown]
  - Nausea [Unknown]
  - Vomiting [Unknown]
  - Anastomotic leak [Unknown]
  - Dehydration [Unknown]
  - Arrhythmia [Unknown]
  - Dysphagia [Unknown]
  - Lymphopenia [Unknown]
  - Fatigue [Unknown]
  - Anaemia [Unknown]
